FAERS Safety Report 8438914-8 (Version None)
Quarter: 2012Q2

REPORT INFORMATION
  Report Type: 
  Country: None (occurrence: None)
  Receive Date: 20120615
  Receipt Date: 20120607
  Transmission Date: 20120825
  Serious: Yes (Hospitalization)
  Sender: FDA-Public Use
  Company Number: AU-UCBSA-058113

PATIENT
  Age: 62 Year
  Sex: Male
  Weight: 92.5 kg

DRUGS (1)
  1. CIMZIA [Suspect]
     Route: 058
     Dates: start: 20090601, end: 20120207

REACTIONS (1)
  - SCIATICA [None]
